FAERS Safety Report 20654922 (Version 2)
Quarter: 2022Q2

REPORT INFORMATION
  Report Type: Spontaneous
  Country: US (occurrence: US)
  Receive Date: 20220330
  Receipt Date: 20220415
  Transmission Date: 20220721
  Serious: No
  Sender: FDA-Public Use
  Company Number: US-PFIZER INC-202200348633

PATIENT
  Sex: Female

DRUGS (2)
  1. NICOTROL [Suspect]
     Active Substance: NICOTINE
     Dosage: 10 UG (PER CARTRIDGE)
  2. NICOTROL [Suspect]
     Active Substance: NICOTINE
     Dosage: 10 MG (168 COUNT 1 MONTH

REACTIONS (1)
  - Drug ineffective [Unknown]
